FAERS Safety Report 11403528 (Version 2)
Quarter: 2015Q3

REPORT INFORMATION
  Report Type: Report from Study
  Country: US (occurrence: US)
  Receive Date: 20150821
  Receipt Date: 20150831
  Transmission Date: 20151125
  Serious: Yes (Death, Other)
  Sender: FDA-Public Use
  Company Number: US-GILEAD-2015-0168709

PATIENT
  Age: 68 Year
  Sex: Female

DRUGS (10)
  1. METOPROLOL SUCCINATE. [Concomitant]
     Active Substance: METOPROLOL SUCCINATE
  2. METFORMIN [Concomitant]
     Active Substance: METFORMIN HYDROCHLORIDE
  3. AMBRISENTAN [Suspect]
     Active Substance: AMBRISENTAN
     Indication: PULMONARY ARTERIAL HYPERTENSION
     Dosage: 10 MG, QD
     Route: 065
     Dates: start: 20150128
  4. WARFARIN [Concomitant]
     Active Substance: WARFARIN
  5. QUINIDINE [Concomitant]
     Active Substance: QUINIDINE
  6. AMLODIPINE W/VALSARTAN [Concomitant]
     Active Substance: AMLODIPINE\VALSARTAN
  7. POTASSIUM [Concomitant]
     Active Substance: POTASSIUM
  8. LOSARTAN. [Concomitant]
     Active Substance: LOSARTAN
  9. FUROSEMIDE. [Concomitant]
     Active Substance: FUROSEMIDE
  10. PRAVASTATIN [Concomitant]
     Active Substance: PRAVASTATIN\PRAVASTATIN SODIUM

REACTIONS (2)
  - Dyspnoea [Unknown]
  - Sudden death [Fatal]

NARRATIVE: CASE EVENT DATE: 20150811
